FAERS Safety Report 4358883-X (Version None)
Quarter: 2004Q2

REPORT INFORMATION
  Report Type: 
  Country: None (occurrence: None)
  Receive Date: 20040511
  Receipt Date: 20040429
  Transmission Date: 20050107
  Serious: Yes (Hospitalization)
  Sender: FDA-Public Use
  Company Number: HQWYE671603MAY04

PATIENT
  Age: 52 Year
  Sex: Female
  Weight: 91 kg

DRUGS (23)
  1. METOCLOPRAMIDE [Suspect]
     Indication: NAUSEA
     Dosage: 10 MG 4X PER 1 DAY; SEE IMAGE
     Dates: start: 20021227, end: 20021230
  2. METOCLOPRAMIDE [Suspect]
     Indication: VOMITING
     Dosage: 10 MG 4X PER 1 DAY; SEE IMAGE
     Dates: start: 20021227, end: 20021230
  3. METOCLOPRAMIDE [Suspect]
     Indication: NAUSEA
     Dosage: 10 MG 4X PER 1 DAY; SEE IMAGE
     Dates: start: 20021231, end: 20030110
  4. METOCLOPRAMIDE [Suspect]
     Indication: VOMITING
     Dosage: 10 MG 4X PER 1 DAY; SEE IMAGE
     Dates: start: 20021231, end: 20030110
  5. METOCLOPRAMIDE [Suspect]
     Indication: NAUSEA
     Dosage: 10 MG 4X PER 1 DAY; SEE IMAGE
     Dates: start: 20030111, end: 20030226
  6. METOCLOPRAMIDE [Suspect]
     Indication: VOMITING
     Dosage: 10 MG 4X PER 1 DAY; SEE IMAGE
     Dates: start: 20030111, end: 20030226
  7. TACROLIMUS (TACROLIMUS,) [Suspect]
     Indication: PROPHYLAXIS AGAINST TRANSPLANT REJECTION
     Dosage: 7 MG 2X PER 1 DAY; SEE IMAGE
     Dates: start: 20000101, end: 20021201
  8. TACROLIMUS (TACROLIMUS,) [Suspect]
     Indication: PROPHYLAXIS AGAINST TRANSPLANT REJECTION
     Dosage: 7 MG 2X PER 1 DAY; SEE IMAGE
     Dates: start: 20021202, end: 20021216
  9. TACROLIMUS (TACROLIMUS,) [Suspect]
     Indication: PROPHYLAXIS AGAINST TRANSPLANT REJECTION
     Dosage: 7 MG 2X PER 1 DAY; SEE IMAGE
     Dates: start: 20021217, end: 20030101
  10. TACROLIMUS (TACROLIMUS,) [Suspect]
     Indication: PROPHYLAXIS AGAINST TRANSPLANT REJECTION
     Dosage: 7 MG 2X PER 1 DAY; SEE IMAGE
     Dates: start: 20030102, end: 20030104
  11. TACROLIMUS (TACROLIMUS,) [Suspect]
     Indication: PROPHYLAXIS AGAINST TRANSPLANT REJECTION
     Dosage: 7 MG 2X PER 1 DAY; SEE IMAGE
     Dates: start: 20030107, end: 20030123
  12. TACROLIMUS (TACROLIMUS,) [Suspect]
     Indication: PROPHYLAXIS AGAINST TRANSPLANT REJECTION
     Dosage: 7 MG 2X PER 1 DAY; SEE IMAGE
     Dates: start: 20030124
  13. PREDNISONE [Concomitant]
  14. RAPAMUNE [Concomitant]
  15. URSODIOL (URSODEOXYCHOLIC ACID) [Concomitant]
  16. ONDANSETRON HCL [Concomitant]
  17. MYCOPHENOLATE MOFETIL (MYCOPHENOLATE MOFETIL) [Concomitant]
  18. KETOCONAZOLE (KETOCONAZOLE) [Concomitant]
  19. OMEPRAZOLE [Concomitant]
  20. PANTOPRAZOLE (PANTOPRAZOLE) [Concomitant]
  21. LEVOFLOXACIN [Concomitant]
  22. METRONIDAZOLE [Concomitant]
  23. RANITDINE (RANITIDINE) [Concomitant]

REACTIONS (19)
  - ALANINE AMINOTRANSFERASE INCREASED [None]
  - ASPARTATE AMINOTRANSFERASE INCREASED [None]
  - ASTHENIA [None]
  - DIARRHOEA [None]
  - DRUG INTERACTION [None]
  - DRUG LEVEL ABOVE THERAPEUTIC [None]
  - DRUG LEVEL BELOW THERAPEUTIC [None]
  - DRUG TOXICITY [None]
  - HEADACHE [None]
  - NAUSEA [None]
  - NEPHROPATHY TOXIC [None]
  - NEUROTOXICITY [None]
  - PAIN IN EXTREMITY [None]
  - PYREXIA [None]
  - RENAL FAILURE ACUTE [None]
  - RENAL TUBULAR NECROSIS [None]
  - TRANSPLANT REJECTION [None]
  - TREMOR [None]
  - VOMITING [None]
